FAERS Safety Report 15403083 (Version 1)
Quarter: 2018Q3

REPORT INFORMATION
  Report Type: Spontaneous
  Country: US (occurrence: US)
  Receive Date: 20180918
  Receipt Date: 20180918
  Transmission Date: 20181010
  Serious: No
  Sender: FDA-Public Use
  Company Number: None

PATIENT
  Age: 36 Year
  Sex: Female
  Weight: 130.5 kg

DRUGS (10)
  1. MODAFINIL TABLETS [Suspect]
     Active Substance: MODAFINIL
     Indication: HYPERSOMNIA
     Dosage: ?          QUANTITY:1 TABLET(S);?
     Route: 048
     Dates: start: 20180911, end: 20180914
  2. DOXYCYCLINE HYCATE [Concomitant]
  3. CALCIUM [Concomitant]
     Active Substance: CALCIUM
  4. BUPROPRIAN [Concomitant]
     Active Substance: BUPROPION
  5. SINGULAIR [Concomitant]
     Active Substance: MONTELUKAST SODIUM
  6. JUNEL FE 1/20 [Concomitant]
     Active Substance: ETHINYL ESTRADIOL\NORETHINDRONE ACETATE
  7. BIOTENE NOS [Concomitant]
     Active Substance: CETYLPYRIDINIUM CHLORIDE OR SODIUM FLUORIDE OR SODIUM MONOFLUOROPHOSPHATE OR GLUCOSE OXIDASE\LACTOFERRIN\LACTOPEROXIDASE BOVINE\LYSOZYME
  8. MULTIVITAMIN [Concomitant]
     Active Substance: VITAMINS
  9. VITAMIN D [Concomitant]
     Active Substance: CHOLECALCIFEROL
  10. BIOTIN [Concomitant]
     Active Substance: BIOTIN

REACTIONS (2)
  - Therapy cessation [None]
  - Hallucination, visual [None]

NARRATIVE: CASE EVENT DATE: 20180913
